FAERS Safety Report 9140167 (Version 1)
Quarter: 2013Q1

REPORT INFORMATION
  Report Type: Spontaneous
  Country: US (occurrence: US)
  Receive Date: 20130305
  Receipt Date: 20130305
  Transmission Date: 20140127
  Serious: Yes (Death)
  Sender: FDA-Public Use
  Company Number: PHHY2013US020280

PATIENT
  Sex: 0

DRUGS (5)
  1. OXYCODONE HYDROCHLORIDE [Suspect]
  2. DEXTROMETHORPHAN [Suspect]
  3. DIPHENHYDRAMINE [Suspect]
  4. BROMPHENIRAMINE [Suspect]
  5. GUAIFENESIN [Suspect]

REACTIONS (1)
  - Toxicity to various agents [Fatal]
